FAERS Safety Report 24023257 (Version 11)
Quarter: 2024Q3

REPORT INFORMATION
  Report Type: Report from Study
  Country: CN (occurrence: CN)
  Receive Date: 20240627
  Receipt Date: 20240710
  Transmission Date: 20241016
  Serious: No
  Sender: ROCHE
  Company Number: CN-ROCHE-3394454

PATIENT
  Age: 59 Year
  Sex: Male
  Weight: 70.0 kg

DRUGS (13)
  1. ALECTINIB [Suspect]
     Active Substance: ALECTINIB
     Indication: Non-small cell lung cancer
     Route: 048
     Dates: start: 20230217
  2. VALSARTANA + ANLODIPINO [Concomitant]
     Indication: Hypertension
     Route: 048
     Dates: start: 2016
  3. METFORMIN HYDROCHLORIDE [Concomitant]
     Active Substance: METFORMIN HYDROCHLORIDE
     Indication: Diabetes mellitus
     Route: 048
     Dates: start: 2016
  4. INSULIN DETEMIR [Concomitant]
     Active Substance: INSULIN DETEMIR
     Indication: Diabetes mellitus
     Route: 058
     Dates: start: 2017, end: 20230711
  5. MAGNESIUM ISOGLYCYRRHIZINATE [Concomitant]
     Active Substance: MAGNESIUM ISOGLYCYRRHIZINATE
     Route: 042
     Dates: start: 20230301, end: 20230303
  6. BEVACIZUMAB [Concomitant]
     Active Substance: BEVACIZUMAB
     Indication: Lung neoplasm malignant
     Route: 042
     Dates: start: 20230303, end: 20230303
  7. IBANDRONATE SODIUM [Concomitant]
     Active Substance: IBANDRONATE SODIUM
  8. INCADRONATE DISODIUM [Concomitant]
     Active Substance: INCADRONATE DISODIUM
     Route: 042
     Dates: start: 20230530, end: 20230530
  9. INCADRONATE DISODIUM [Concomitant]
     Active Substance: INCADRONATE DISODIUM
     Route: 042
     Dates: start: 20230721, end: 20230721
  10. RECOMBINANT HUMAN THROMBOPOIETIN [Concomitant]
     Active Substance: RECOMBINANT HUMAN THROMBOPOIETIN
     Indication: Platelet count increased
     Dosage: 15000 U
     Route: 058
     Dates: start: 20230217, end: 20230217
  11. ALECTINIB [Concomitant]
     Active Substance: ALECTINIB
     Indication: Lung neoplasm malignant
     Dates: start: 20230213
  12. PAECILOMYCES HEPIALI CHEN [Concomitant]
     Indication: Blood creatinine increased
     Dosage: 4 CAPSULE
     Route: 048
     Dates: start: 20230617, end: 20230706
  13. SIMO DECOCTION [Concomitant]
     Indication: Abdominal distension
     Route: 048
     Dates: start: 20230711, end: 20230715

REACTIONS (4)
  - White blood cell count decreased [Recovered/Resolved]
  - Atrioventricular block first degree [Not Recovered/Not Resolved]
  - Hypertransaminasaemia [Recovered/Resolved]
  - Nasopharyngitis [Recovered/Resolved]

NARRATIVE: CASE EVENT DATE: 20230218
